FAERS Safety Report 22140097 (Version 1)
Quarter: 2023Q1

REPORT INFORMATION
  Report Type: Spontaneous
  Country: US (occurrence: US)
  Receive Date: 20230327
  Receipt Date: 20230327
  Transmission Date: 20230418
  Serious: Yes (Other)
  Sender: FDA-Public Use
  Company Number: US-DENTSPLY-2023SCDP000088

PATIENT
  Age: 25 Year
  Sex: Male

DRUGS (3)
  1. BENZOCAINE [Suspect]
     Active Substance: BENZOCAINE
     Indication: Anaesthesia
     Dosage: TWO SPRAYS OF 20% BENZOCAINE
     Route: 048
  2. VERSED [Suspect]
     Active Substance: MIDAZOLAM HYDROCHLORIDE
     Indication: Sedation
     Dosage: UNK
  3. FENTANYL [Suspect]
     Active Substance: FENTANYL
     Indication: Sedation
     Dosage: UNK

REACTIONS (1)
  - Methaemoglobinaemia [Recovered/Resolved]
